FAERS Safety Report 16569404 (Version 1)
Quarter: 2019Q3

REPORT INFORMATION
  Report Type: Spontaneous
  Country: FR (occurrence: FR)
  Receive Date: 20190715
  Receipt Date: 20190715
  Transmission Date: 20191004
  Serious: Yes (Life-Threatening, Disabling)
  Sender: FDA-Public Use
  Company Number: FR-ASTRAZENECA-2019SE99147

PATIENT
  Sex: Male
  Weight: 87 kg

DRUGS (6)
  1. INSULINE [Concomitant]
     Active Substance: INSULIN NOS
  2. BRILIQUE [Suspect]
     Active Substance: TICAGRELOR
     Indication: PROPHYLAXIS
     Route: 048
     Dates: end: 20190618
  3. RAMIPRIL. [Concomitant]
     Active Substance: RAMIPRIL
     Route: 065
  4. BISOPROLOL [Concomitant]
     Active Substance: BISOPROLOL
  5. ACETYLSALICYLIC ACID [Suspect]
     Active Substance: ASPIRIN
     Indication: PROPHYLAXIS
     Route: 048
     Dates: end: 20190524
  6. ATORVASTATIN [Concomitant]
     Active Substance: ATORVASTATIN

REACTIONS (2)
  - Cerebrovascular accident [Recovered/Resolved with Sequelae]
  - Haemorrhage [Recovered/Resolved]

NARRATIVE: CASE EVENT DATE: 20190524
